FAERS Safety Report 8102759-9 (Version None)
Quarter: 2012Q1

REPORT INFORMATION
  Report Type: 
  Country: None (occurrence: None)
  Receive Date: 20120201
  Receipt Date: 20120126
  Transmission Date: 20120608
  Serious: No
  Sender: FDA-Public Use
  Company Number: US-PFIZER INC-2012022394

PATIENT
  Sex: Male
  Weight: 131.5 kg

DRUGS (1)
  1. FLECTOR [Suspect]
     Indication: PAIN
     Dosage: UNK
     Route: 061
     Dates: start: 20120112, end: 20120114

REACTIONS (1)
  - DRUG INEFFECTIVE [None]
